FAERS Safety Report 20754500 (Version 1)
Quarter: 2022Q2

REPORT INFORMATION
  Report Type: Spontaneous
  Country: US (occurrence: None)
  Receive Date: 20220426
  Receipt Date: 20220426
  Transmission Date: 20220720
  Serious: No
  Sender: FDA-Public Use
  Company Number: US-ROCHE-2807568

PATIENT
  Sex: Female

DRUGS (1)
  1. ESBRIET [Suspect]
     Active Substance: PIRFENIDONE
     Indication: Idiopathic pulmonary fibrosis
     Dosage: TID, 267 MG X 3
     Route: 048

REACTIONS (5)
  - Oral mucosal blistering [Unknown]
  - Rash [Unknown]
  - Swollen tongue [Unknown]
  - Swelling face [Unknown]
  - Lip swelling [Unknown]
